FAERS Safety Report 9905827 (Version 1)
Quarter: 2014Q1

REPORT INFORMATION
  Report Type: Spontaneous
  Country: GB (occurrence: GB)
  Receive Date: 20140218
  Receipt Date: 20140218
  Transmission Date: 20141002
  Serious: Yes (Life-Threatening, Hospitalization)
  Sender: FDA-Public Use
  Company Number: GB-TEVA-462053ISR

PATIENT
  Age: 74 Year
  Sex: Female
  Weight: 52.61 kg

DRUGS (7)
  1. WARFARIN [Suspect]
     Indication: ATRIAL FIBRILLATION
     Dosage: VARIABLE, TARGET INR 2-3
     Route: 048
     Dates: start: 200007
  2. LISINOPRIL [Concomitant]
     Indication: HYPERTENSION
     Dosage: 10 MILLIGRAM DAILY;
  3. SIMVASTATIN [Concomitant]
     Indication: HYPERCHOLESTEROLAEMIA
     Dosage: 20 MILLIGRAM DAILY;
     Dates: start: 20110611
  4. DIGOXIN [Concomitant]
     Dosage: 250 MICROGRAM DAILY;
     Dates: start: 20080328
  5. FUROSEMIDE [Concomitant]
     Dosage: 40 MILLIGRAM DAILY;
  6. DILTIAZEM [Concomitant]
     Dosage: 360 MILLIGRAM DAILY;
  7. AMILORIDE [Concomitant]
     Dosage: 5 MILLIGRAM DAILY;

REACTIONS (5)
  - Upper gastrointestinal haemorrhage [Recovered/Resolved]
  - Dizziness [Unknown]
  - Hypotension [Unknown]
  - Melaena [Unknown]
  - Head injury [Unknown]
